FAERS Safety Report 9217288 (Version 2)
Quarter: 2013Q2

REPORT INFORMATION
  Report Type: Spontaneous
  Country: US (occurrence: US)
  Receive Date: 20130408
  Receipt Date: 20130426
  Transmission Date: 20140414
  Serious: No
  Sender: FDA-Public Use
  Company Number: US-PFIZER INC-2013107522

PATIENT
  Age: 61 Year
  Sex: Female
  Weight: 59.86 kg

DRUGS (1)
  1. PRISTIQ [Suspect]
     Indication: DEPRESSION
     Dosage: 50 MG DAILY
     Route: 048
     Dates: start: 2012, end: 20130402

REACTIONS (1)
  - Alopecia [Not Recovered/Not Resolved]
